FAERS Safety Report 8949885 (Version 1)
Quarter: 2012Q4

REPORT INFORMATION
  Report Type: 
  Country: GR (occurrence: GR)
  Receive Date: 20121206
  Receipt Date: 20121206
  Transmission Date: 20130627
  Serious: Yes (Other)
  Sender: FDA-Public Use
  Company Number: GR-NOVOPROD-365799

PATIENT
  Age: 70 Year
  Sex: Male

DRUGS (1)
  1. VICTOZA [Suspect]
     Indication: TYPE 2 DIABETES MELLITUS
     Dosage: 0.6 mg, qd
     Route: 058

REACTIONS (2)
  - Amylase increased [Recovered/Resolved]
  - Abdominal pain [Recovered/Resolved]
